FAERS Safety Report 23862169 (Version 1)
Quarter: 2024Q2

REPORT INFORMATION
  Report Type: Spontaneous
  Country: IT (occurrence: IT)
  Receive Date: 20240516
  Receipt Date: 20240516
  Transmission Date: 20240717
  Serious: Yes (Disabling, Other)
  Sender: FDA-Public Use
  Company Number: IT-MINISAL02-983644

PATIENT
  Age: 9 Year
  Sex: Female
  Weight: 51.6 kg

DRUGS (2)
  1. ACYCLOVIR [Suspect]
     Active Substance: ACYCLOVIR
     Indication: Herpes zoster
     Dosage: 20 MILLIGRAM/KILOGRAM, FOUR TIMES/DAY
     Route: 048
     Dates: start: 20221112, end: 20221114
  2. ACYCLOVIR [Suspect]
     Active Substance: ACYCLOVIR
     Dosage: 10 MILLIGRAM/KILOGRAM, 3 TIMES A DAY
     Route: 048
     Dates: start: 20221114, end: 20221120

REACTIONS (3)
  - Ototoxicity [Recovered/Resolved]
  - Hyperacusis [Recovered/Resolved]
  - Tinnitus [Recovered/Resolved]

NARRATIVE: CASE EVENT DATE: 20221113
